FAERS Safety Report 14958394 (Version 1)
Quarter: 2018Q2

REPORT INFORMATION
  Report Type: Spontaneous
  Country: US (occurrence: US)
  Receive Date: 20180509
  Receipt Date: 20180509
  Transmission Date: 20180711
  Serious: Yes (Hospitalization)
  Sender: FDA-Public Use
  Company Number: None

PATIENT
  Sex: Male

DRUGS (13)
  1. FUROSEMIDE. [Concomitant]
     Active Substance: FUROSEMIDE
  2. LEVEMIR [Concomitant]
     Active Substance: INSULIN DETEMIR
  3. TAMSULOSIN [Concomitant]
     Active Substance: TAMSULOSIN
  4. ZETIA [Concomitant]
     Active Substance: EZETIMIBE
  5. REPATHA [Suspect]
     Active Substance: EVOLOCUMAB
     Indication: HYPERLIPIDAEMIA
     Dosage: ?          OTHER FREQUENCY:BIWEEKLY;?
     Route: 058
  6. ACTOS [Concomitant]
     Active Substance: PIOGLITAZONE HYDROCHLORIDE
  7. METFORMIN [Concomitant]
     Active Substance: METFORMIN HYDROCHLORIDE
  8. SPIRONOLACT [Concomitant]
     Active Substance: SPIRONOLACTONE
  9. AMODARONE [Concomitant]
  10. ATORVASTATIN [Concomitant]
     Active Substance: ATORVASTATIN
  11. ELIQUIS [Concomitant]
     Active Substance: APIXABAN
  12. PRALUENT [Concomitant]
     Active Substance: ALIROCUMAB
  13. ONE TOUCH [Concomitant]

REACTIONS (3)
  - Muscular weakness [None]
  - Cardiac disorder [None]
  - Fall [None]
